FAERS Safety Report 4979513-X (Version None)
Quarter: 2006Q2

REPORT INFORMATION
  Report Type: 
  Country: None (occurrence: None)
  Receive Date: 20060421
  Receipt Date: 20060419
  Transmission Date: 20061013
  Serious: Yes (Hospitalization)
  Sender: FDA-Public Use
  Company Number: 2006AP01822

PATIENT
  Age: 19899 Day
  Sex: Female

DRUGS (3)
  1. PROPOFOL [Suspect]
     Indication: ANAESTHESIA
     Dates: start: 20050711
  2. EZETIMIBE [Suspect]
     Indication: METABOLIC DISORDER
     Route: 048
     Dates: start: 20050331
  3. FENTANYL [Suspect]
     Indication: PAIN
     Route: 058
     Dates: start: 20050711, end: 20050720

REACTIONS (8)
  - ABDOMINAL PAIN [None]
  - ABDOMINAL PAIN UPPER [None]
  - DEHYDRATION [None]
  - LIPASE INCREASED [None]
  - NAUSEA [None]
  - PANCREATITIS [None]
  - RENAL IMPAIRMENT [None]
  - VOMITING [None]
